FAERS Safety Report 6873116-8 (Version None)
Quarter: 2010Q3

REPORT INFORMATION
  Report Type: 
  Country: None (occurrence: None)
  Receive Date: 20100723
  Receipt Date: 20090108
  Transmission Date: 20110219
  Serious: No
  Sender: FDA-Public Use
  Company Number: US-PFIZER INC-2008099617

PATIENT
  Sex: Female
  Weight: 81.179 kg

DRUGS (10)
  1. CHANTIX [Suspect]
     Indication: SMOKING CESSATION THERAPY
     Dates: start: 20081119
  2. CHANTIX [Suspect]
     Indication: NICOTINE DEPENDENCE
  3. SYNTHROID [Concomitant]
  4. CARVEDILOL [Concomitant]
  5. BUPROPION HYDROCHLORIDE [Concomitant]
  6. CLONAZEPAM [Concomitant]
     Dosage: 0.5 MG, 2X/DAY
  7. SEROQUEL [Concomitant]
  8. LYRICA [Concomitant]
  9. METHOCARBAMOL [Concomitant]
  10. FLEXERIL [Concomitant]
     Dosage: 10 MG, AS NEEDED

REACTIONS (4)
  - ABNORMAL DREAMS [None]
  - DISTURBANCE IN ATTENTION [None]
  - DYSPHORIA [None]
  - IRRITABILITY [None]
